FAERS Safety Report 5184277-3 (Version None)
Quarter: 2006Q4

REPORT INFORMATION
  Report Type: 
  Country: None (occurrence: None)
  Receive Date: 20061220
  Receipt Date: 20060327
  Transmission Date: 20070319
  Serious: No
  Sender: FDA-Public Use
  Company Number: US-GLAXOSMITHKLINE-A0599075A

PATIENT
  Age: 60 Year
  Sex: Female

DRUGS (3)
  1. NICODERM CQ [Suspect]
  2. NICORETTE [Suspect]
     Dates: start: 20060323, end: 20060326
  3. NICODERM CQ [Suspect]

REACTIONS (3)
  - APPLICATION SITE RASH [None]
  - APPLICATION SITE REACTION [None]
  - NAUSEA [None]
